FAERS Safety Report 20507480 (Version 1)
Quarter: 2022Q1

REPORT INFORMATION
  Report Type: Spontaneous
  Country: RO (occurrence: RO)
  Receive Date: 20220223
  Receipt Date: 20220223
  Transmission Date: 20220423
  Serious: Yes (Hospitalization, Other)
  Sender: FDA-Public Use
  Company Number: RO-AMNEAL PHARMACEUTICALS-2022-AMRX-00373

PATIENT
  Age: 15 Year
  Sex: Male

DRUGS (1)
  1. ALBENZA [Suspect]
     Active Substance: ALBENDAZOLE
     Indication: Product used for unknown indication
     Dosage: UNK
     Route: 065

REACTIONS (10)
  - Autoimmune hepatitis [Recovering/Resolving]
  - Hyperbilirubinaemia [Recovered/Resolved]
  - Cholestasis [Unknown]
  - Jaundice [Unknown]
  - Decreased appetite [Unknown]
  - Pruritus [Unknown]
  - Hepatomegaly [Unknown]
  - Faeces pale [Unknown]
  - Drug-induced liver injury [Recovering/Resolving]
  - Asthenia [Unknown]
